FAERS Safety Report 18432518 (Version 1)
Quarter: 2020Q4

REPORT INFORMATION
  Report Type: Spontaneous
  Country: IT (occurrence: IT)
  Receive Date: 20201027
  Receipt Date: 20201027
  Transmission Date: 20210114
  Serious: Yes (Hospitalization, Other)
  Sender: FDA-Public Use
  Company Number: IT-PFIZER INC-2020404157

PATIENT
  Age: 74 Year
  Sex: Male

DRUGS (9)
  1. METHYLPREDNISOLONE SODIUM SUCCINATE. [Suspect]
     Active Substance: METHYLPREDNISOLONE SODIUM SUCCINATE
     Indication: OPTIC NEURITIS
     Dosage: 1000 MG, 1X/DAY
     Route: 042
  2. PREDNISONE. [Suspect]
     Active Substance: PREDNISONE
     Indication: OPTIC NEURITIS
     Dosage: HIGH-DOSE ORAL STEROID THERAPY WAS MAINTAINED FOR 4 WEEKS WITH SUBSEQUENT GRADUAL TAPERING
  3. PREDNISONE. [Suspect]
     Active Substance: PREDNISONE
     Indication: DIPLOPIA
  4. MEROPENEM. [Concomitant]
     Active Substance: MEROPENEM
     Indication: BACTERIAL INFECTION
     Dosage: 3 G, 1X/DAY
  5. AMIKACINE [AMIKACIN] [Concomitant]
     Active Substance: AMIKACIN
     Indication: BACTERIAL INFECTION
     Dosage: 1 G, 1X/DAY
  6. AMIKACINE [AMIKACIN] [Concomitant]
     Active Substance: AMIKACIN
     Indication: EVIDENCE BASED TREATMENT
  7. PREDNISONE. [Suspect]
     Active Substance: PREDNISONE
     Indication: GIANT CELL ARTERITIS
     Dosage: 1 MG/KG, 1X/DAY
     Route: 048
  8. MEROPENEM. [Concomitant]
     Active Substance: MEROPENEM
     Indication: EVIDENCE BASED TREATMENT
  9. METHYLPREDNISOLONE SODIUM SUCCINATE. [Suspect]
     Active Substance: METHYLPREDNISOLONE SODIUM SUCCINATE
     Dosage: HIGH-DOSE ORAL STEROID THERAPY WAS MAINTAINED FOR 4 WEEKS WITH SUBSEQUENT GRADUAL TAPERING

REACTIONS (4)
  - Listeria sepsis [Unknown]
  - Listeriosis [Unknown]
  - Drug ineffective [Unknown]
  - Meningitis [Unknown]
